FAERS Safety Report 4528983-X (Version None)
Quarter: 2004Q4

REPORT INFORMATION
  Report Type: 
  Country: None (occurrence: None)
  Receive Date: 20041216
  Receipt Date: 20020325
  Transmission Date: 20050328
  Serious: Yes (Other)
  Sender: FDA-Public Use
  Company Number: GB-GLAXOSMITHKLINE-B0263844A

PATIENT
  Age: 51 Year
  Sex: Male

DRUGS (2)
  1. SEROXAT [Suspect]
     Indication: DEPRESSION
     Dosage: 1TAB PER DAY
     Route: 048
     Dates: start: 20020319
  2. PHENOBARBITONE [Concomitant]
     Route: 042

REACTIONS (7)
  - DIZZINESS [None]
  - FATIGUE [None]
  - HALLUCINATION [None]
  - HYPERSENSITIVITY [None]
  - NAUSEA [None]
  - SELF INJURIOUS BEHAVIOUR [None]
  - SUICIDE ATTEMPT [None]
